FAERS Safety Report 4692804-5 (Version None)
Quarter: 2005Q2

REPORT INFORMATION
  Report Type: 
  Country: None (occurrence: None)
  Receive Date: 20050617
  Receipt Date: 20050517
  Transmission Date: 20051028
  Serious: Yes (Hospitalization, Other)
  Sender: FDA-Public Use
  Company Number: PHNU2005DE01972

PATIENT
  Age: 68 Year
  Sex: Male
  Weight: 90 kg

DRUGS (2)
  1. ZOMETA [Suspect]
     Indication: MULTIPLE MYELOMA
     Dosage: 4 MG, QMO
     Route: 042
     Dates: start: 20011201, end: 20050201
  2. DEXAMETHASONE [Suspect]
     Indication: MULTIPLE MYELOMA
     Dosage: 20 MG ON 10 DAYS/MONTHS
     Route: 065
     Dates: start: 20040501, end: 20050101

REACTIONS (9)
  - ASEPTIC NECROSIS BONE [None]
  - BONE DISORDER [None]
  - GENERAL ANAESTHESIA [None]
  - IMPAIRED HEALING [None]
  - INFLAMMATION [None]
  - MANDIBULECTOMY [None]
  - NEUROLYSIS SURGICAL [None]
  - PLASTIC SURGERY [None]
  - TOOTH EXTRACTION [None]
